FAERS Safety Report 8306243-9 (Version None)
Quarter: 2012Q2

REPORT INFORMATION
  Report Type: 
  Country: None (occurrence: None)
  Receive Date: 20120423
  Receipt Date: 20120418
  Transmission Date: 20120825
  Serious: No
  Sender: FDA-Public Use
  Company Number: US-PFIZER INC-2012096581

PATIENT
  Sex: Male
  Weight: 99.773 kg

DRUGS (2)
  1. EFFEXOR XR [Suspect]
     Indication: DEPRESSION
     Dosage: 225 MG, 1X/DAY
     Route: 048
     Dates: start: 20050101
  2. EFFEXOR XR [Suspect]
     Indication: ANXIETY

REACTIONS (1)
  - DRUG SCREEN FALSE POSITIVE [None]
